FAERS Safety Report 9522095 (Version 1)
Quarter: 2013Q1

REPORT INFORMATION
  Report Type: Spontaneous
  Country: US (occurrence: None)
  Receive Date: 20130305
  Receipt Date: 20130305
  Transmission Date: 20140127
  Serious: Yes (Other)
  Sender: FDA-Public Use
  Company Number: 163-21880-12032134

PATIENT
  Age: 90 Year
  Sex: Male
  Weight: 79.38 kg

DRUGS (8)
  1. REVLIMID [Suspect]
     Indication: PLASMA CELL MYELOMA
     Dosage: 5 MG, 21/7, PO
     Route: 048
     Dates: start: 201104
  2. TRAZODONE (TRAZODONE) [Concomitant]
  3. ARICEPT (DONEPEZIL HYDROCHLORIDE) [Concomitant]
  4. GLUCOSAMINE (GLUCOSAMINE) [Concomitant]
  5. VITAMINS [Concomitant]
  6. ZOMETA (ZOLEDRONIC ACID) [Concomitant]
  7. VELCADE (BORTEZOMIB) [Concomitant]
  8. PROCRIT (ERYTHROPOIETIN) [Concomitant]

REACTIONS (1)
  - Anaemia [None]
